FAERS Safety Report 8779338 (Version 1)
Quarter: 2012Q4

REPORT INFORMATION
  Report Type: 
  Country: FR (occurrence: FR)
  Receive Date: 20120911
  Receipt Date: 20120911
  Transmission Date: 20130627
  Serious: Yes (Hospitalization)
  Sender: FDA-Public Use
  Company Number: FR-PFIZER INC-2012218234

PATIENT
  Age: 44 Year
  Sex: Female

DRUGS (2)
  1. CHAMPIX [Suspect]
     Dosage: 0.5 mg, daily
     Route: 048
     Dates: start: 20120625, end: 201206
  2. CHAMPIX [Suspect]
     Dosage: 1 mg, daily
     Route: 048
     Dates: start: 201206, end: 20120630

REACTIONS (5)
  - Insomnia [Recovered/Resolved]
  - Incoherent [Recovered/Resolved]
  - Affective disorder [Recovered/Resolved]
  - Depersonalisation [Recovered/Resolved]
  - Psychomotor hyperactivity [Recovered/Resolved]
